FAERS Safety Report 14276793 (Version 2)
Quarter: 2018Q4

REPORT INFORMATION
  Report Type: Spontaneous
  Country: US (occurrence: US)
  Receive Date: 20171211
  Receipt Date: 20181212
  Transmission Date: 20190204
  Serious: Yes (Other)
  Sender: FDA-Public Use
  Company Number: US-OTSUKA-2017_023236

PATIENT
  Age: 47 Year
  Sex: Female

DRUGS (4)
  1. ABILIFY [Suspect]
     Active Substance: ARIPIPRAZOLE
     Dosage: 15 MG, QD
     Route: 048
     Dates: end: 201609
  2. ARIPIPRAZOLE. [Concomitant]
     Active Substance: ARIPIPRAZOLE
     Indication: PRODUCT USED FOR UNKNOWN INDICATION
     Dosage: UNK
     Route: 065
     Dates: start: 20160823, end: 201609
  3. ABILIFY [Suspect]
     Active Substance: ARIPIPRAZOLE
     Dosage: 10 MG, QD
     Route: 048
  4. ABILIFY [Suspect]
     Active Substance: ARIPIPRAZOLE
     Indication: PRODUCT USED FOR UNKNOWN INDICATION
     Dosage: 5 MG, QD
     Route: 048
     Dates: start: 2008

REACTIONS (23)
  - Emotional distress [Unknown]
  - Fatigue [Unknown]
  - Injury [Unknown]
  - Transferrin increased [Unknown]
  - Eating disorder [Unknown]
  - Gamma-glutamyltransferase increased [Unknown]
  - Alpha 1 foetoprotein increased [Unknown]
  - Obsessive-compulsive disorder [Unknown]
  - Condition aggravated [Recovering/Resolving]
  - Brain injury [Unknown]
  - Gambling disorder [Recovering/Resolving]
  - Iron binding capacity total increased [Unknown]
  - Foot fracture [Unknown]
  - Asthenia [Unknown]
  - Anxiety [Unknown]
  - Economic problem [Unknown]
  - Homeless [Unknown]
  - Blood iron decreased [Unknown]
  - Hypoaesthesia [Unknown]
  - Hypersomnia [Unknown]
  - Suicidal ideation [Unknown]
  - Hepatic steatosis [Unknown]
  - Bankruptcy [Unknown]

NARRATIVE: CASE EVENT DATE: 200901
